FAERS Safety Report 4842692-9 (Version None)
Quarter: 2005Q4

REPORT INFORMATION
  Report Type: 
  Country: None (occurrence: None)
  Receive Date: 20051129
  Receipt Date: 20051111
  Transmission Date: 20060501
  Serious: Yes (Other)
  Sender: FDA-Public Use
  Company Number: 2005154834

PATIENT
  Age: 74 Year
  Sex: Female
  Weight: 71.2147 kg

DRUGS (7)
  1. NEURONTIN [Suspect]
     Indication: NEUROPATHY PERIPHERAL
     Dosage: 1800 MCG (600 MG 3 IN 1 D)
  2. PLAVIX [Concomitant]
  3. CARDIZEM [Concomitant]
  4. COZAAR [Concomitant]
  5. DARVOCET [Concomitant]
  6. AMBIEN [Concomitant]
  7. CYMBALTAN (DULOXETINE HYDROCHLORIDE) [Concomitant]

REACTIONS (3)
  - ABASIA [None]
  - CONDITION AGGRAVATED [None]
  - NEUROPATHY [None]
